FAERS Safety Report 5604046-7 (Version None)
Quarter: 2008Q1

REPORT INFORMATION
  Report Type: 
  Country: None (occurrence: None)
  Receive Date: 20080128
  Receipt Date: 20080118
  Transmission Date: 20080703
  Serious: Yes (Hospitalization, Other)
  Sender: FDA-Public Use
  Company Number: PHBS2007JP21514

PATIENT
  Age: 1 Year
  Sex: Female
  Weight: 11 kg

DRUGS (1)
  1. ZADITEN [Suspect]
     Indication: URTICARIA
     Dosage: 0.4 MG AT 1145 HRS +0.4 MG AT 1200 HRS
     Route: 048
     Dates: start: 20071221, end: 20071221

REACTIONS (7)
  - CYANOSIS [None]
  - HYPOTONIA [None]
  - LOSS OF CONSCIOUSNESS [None]
  - MIOSIS [None]
  - PALLOR [None]
  - URTICARIA [None]
  - WHITE BLOOD CELL COUNT INCREASED [None]
